FAERS Safety Report 8500893-2 (Version None)
Quarter: 2012Q3

REPORT INFORMATION
  Report Type: 
  Country: None (occurrence: None)
  Receive Date: 20120710
  Receipt Date: 20120703
  Transmission Date: 20120928
  Serious: Yes (Hospitalization, Other)
  Sender: FDA-Public Use
  Company Number: PHHY2012JP058113

PATIENT
  Age: 58 Year
  Sex: Male

DRUGS (3)
  1. TASIGNA [Suspect]
     Dosage: 150 MG, DAILY
     Route: 048
     Dates: end: 20120601
  2. TASIGNA [Suspect]
     Dosage: 150 MG, DAILY
     Route: 048
  3. TASIGNA [Suspect]
     Indication: CHRONIC MYELOID LEUKAEMIA
     Dosage: 150 MG, DAILY
     Route: 048
     Dates: start: 20120101

REACTIONS (7)
  - HYPERKERATOSIS [None]
  - PYREXIA [None]
  - DYSGEUSIA [None]
  - RENAL DISORDER [None]
  - DRY SKIN [None]
  - BLOOD CREATININE INCREASED [None]
  - DRY MOUTH [None]
